FAERS Safety Report 8107553-0 (Version None)
Quarter: 2012Q1

REPORT INFORMATION
  Report Type: 
  Country: None (occurrence: None)
  Receive Date: 20120202
  Receipt Date: 20120130
  Transmission Date: 20120608
  Serious: Yes (Hospitalization)
  Sender: FDA-Public Use
  Company Number: FR-ROCHE-1021458

PATIENT
  Age: 74 Year
  Sex: Female

DRUGS (9)
  1. PIPERACILLIN/TAZOBACTAM [Suspect]
     Indication: SCIATICA
     Route: 042
     Dates: start: 20111013, end: 20111016
  2. NEXIUM [Concomitant]
  3. POTASSIUM CHLORIDE [Concomitant]
  4. VFEND [Concomitant]
  5. XANAX [Concomitant]
  6. ROCEPHIN [Suspect]
     Indication: URINARY TRACT INFECTION
     Dates: start: 20111016, end: 20111026
  7. OFLOXACIN [Concomitant]
  8. OXYCONTIN [Concomitant]
     Indication: PRODUCT USED FOR UNKNOWN INDICATION
     Dates: start: 20111013
  9. AMIKACIN [Concomitant]

REACTIONS (3)
  - ERYTHEMA [None]
  - BURNING SENSATION [None]
  - PRURITUS [None]
